FAERS Safety Report 6931647-6 (Version None)
Quarter: 2010Q3

REPORT INFORMATION
  Report Type: 
  Country: None (occurrence: None)
  Receive Date: 20100819
  Receipt Date: 20100805
  Transmission Date: 20110219
  Serious: Yes (Hospitalization)
  Sender: FDA-Public Use
  Company Number: RU-SANOFI-AVENTIS-2010SA046392

PATIENT
  Age: 67 Year
  Sex: Female

DRUGS (2)
  1. ARAVA [Suspect]
     Dates: start: 20100428, end: 20100528
  2. METHYLPREDNISOLONE [Concomitant]
     Route: 048
     Dates: start: 20000101

REACTIONS (5)
  - ASTHENIA [None]
  - FEAR [None]
  - HYPERAEMIA [None]
  - HYPERTENSIVE CRISIS [None]
  - HYPOAESTHESIA [None]
